FAERS Safety Report 4589988-6 (Version None)
Quarter: 2005Q1

REPORT INFORMATION
  Report Type: 
  Country: None (occurrence: None)
  Receive Date: 20050125
  Receipt Date: 20040930
  Transmission Date: 20050727
  Serious: No
  Sender: FDA-Public Use
  Company Number: USA040772596

PATIENT
  Age: 63 Year
  Sex: Female

DRUGS (7)
  1. FORTEO [Suspect]
     Indication: OSTEOPOROSIS
     Dates: start: 20040714
  2. ADVAIR DISKUS 100/50 [Concomitant]
  3. CARDIZEM [Concomitant]
  4. VIOXX [Concomitant]
  5. CALCIUM GLUCONATE [Concomitant]
  6. VITAMINS NOS [Concomitant]
  7. POTASSIUM CHLORIDE [Concomitant]

REACTIONS (7)
  - ANXIETY [None]
  - DIZZINESS [None]
  - HEADACHE [None]
  - INJECTION SITE DISCOLOURATION [None]
  - INJECTION SITE ERYTHEMA [None]
  - INJECTION SITE HAEMORRHAGE [None]
  - NAUSEA [None]
